FAERS Safety Report 18548071 (Version 2)
Quarter: 2021Q1

REPORT INFORMATION
  Report Type: Spontaneous
  Country: US (occurrence: US)
  Receive Date: 20201126
  Receipt Date: 20210323
  Transmission Date: 20210419
  Serious: No
  Sender: FDA-Public Use
  Company Number: US-ELI_LILLY_AND_COMPANY-US202011009696

PATIENT
  Age: 52 Year
  Sex: Female

DRUGS (2)
  1. TRULICITY [Suspect]
     Active Substance: DULAGLUTIDE
     Indication: PRODUCT USED FOR UNKNOWN INDICATION
     Dosage: 1.5 MG, UNKNOWN
     Route: 065
  2. TRULICITY [Suspect]
     Active Substance: DULAGLUTIDE
     Indication: PRODUCT USED FOR UNKNOWN INDICATION
     Dosage: 1.5 MG, UNKNOWN
     Route: 065

REACTIONS (5)
  - Injection site discomfort [Unknown]
  - Injection site urticaria [Unknown]
  - Injection site pruritus [Unknown]
  - Blood glucose increased [Unknown]
  - Injection site pain [Unknown]

NARRATIVE: CASE EVENT DATE: 202009
